FAERS Safety Report 23051281 (Version 1)
Quarter: 2023Q4

REPORT INFORMATION
  Report Type: Spontaneous
  Country: NL (occurrence: None)
  Receive Date: 20231010
  Receipt Date: 20231010
  Transmission Date: 20240110
  Serious: Yes (Life-Threatening, Hospitalization, Disabling)
  Sender: FDA-Public Use
  Company Number: 2023A226383

PATIENT
  Age: 49 Year
  Sex: Female
  Weight: 84 kg

DRUGS (1)
  1. DAPAGLIFLOZIN [Suspect]
     Active Substance: DAPAGLIFLOZIN
     Indication: Type 2 diabetes mellitus
     Dates: start: 20221117

REACTIONS (2)
  - Encephalopathy [Recovering/Resolving]
  - Euglycaemic diabetic ketoacidosis [Recovering/Resolving]
